FAERS Safety Report 9192956 (Version 2)
Quarter: 2013Q2

REPORT INFORMATION
  Report Type: Report from Study
  Country: BR (occurrence: BR)
  Receive Date: 20130327
  Receipt Date: 20130530
  Transmission Date: 20140414
  Serious: Yes (Hospitalization, Other)
  Sender: FDA-Public Use
  Company Number: PHHY2013BR029487

PATIENT
  Age: 88 Year
  Sex: Female

DRUGS (1)
  1. DIOVAN HCT [Suspect]
     Indication: HYPERTENSION
     Dosage: 1 DF (VALSARTAN 160MG AND HYDROCHLOROTIAZIDE 12.5MG) IN THE MORNING
     Route: 048

REACTIONS (12)
  - Necrosis [Recovered/Resolved]
  - Diabetic foot [Recovered/Resolved]
  - Malaise [Unknown]
  - Agitation [Recovered/Resolved]
  - Crying [Recovered/Resolved]
  - Tremor [Recovered/Resolved]
  - Erythema [Recovered/Resolved]
  - Confusional state [Recovered/Resolved]
  - Hypertension [Recovered/Resolved]
  - Headache [Recovered/Resolved]
  - Drug ineffective [Unknown]
  - Blood pressure inadequately controlled [Unknown]
